FAERS Safety Report 19361934 (Version 1)
Quarter: 2021Q2

REPORT INFORMATION
  Report Type: Spontaneous
  Country: IT (occurrence: IT)
  Receive Date: 20210601
  Receipt Date: 20210601
  Transmission Date: 20210717
  Serious: Yes (Other)
  Sender: FDA-Public Use
  Company Number: IT-AMGEN-ITASP2021084323

PATIENT
  Age: 76 Year
  Sex: Male

DRUGS (2)
  1. EZETIMIBE;ROSUVASTATIN [Concomitant]
     Active Substance: EZETIMIBE\ROSUVASTATIN
     Dosage: UNK
  2. REPATHA [Suspect]
     Active Substance: EVOLOCUMAB
     Indication: PRODUCT USED FOR UNKNOWN INDICATION
     Dosage: UNK
     Route: 065
     Dates: start: 2018

REACTIONS (5)
  - Type IIa hyperlipidaemia [Unknown]
  - Unevaluable event [Unknown]
  - Aortic stenosis [Unknown]
  - Sensitive skin [Unknown]
  - Infarction [Unknown]

NARRATIVE: CASE EVENT DATE: 2021
